FAERS Safety Report 4629743-1 (Version None)
Quarter: 2005Q1

REPORT INFORMATION
  Report Type: 
  Country: None (occurrence: None)
  Receive Date: 20050107
  Receipt Date: 20041022
  Transmission Date: 20050727
  Serious: No
  Sender: FDA-Public Use
  Company Number: 235617K04USA

PATIENT
  Age: 40 Year
  Sex: Male

DRUGS (2)
  1. REBIF [Suspect]
     Indication: MULTIPLE SCLEROSIS
     Dosage: 8.8 MCG, 3 IN 1 WEEKS, SUBCUTANEOUS
     Route: 058
     Dates: start: 20041011
  2. METHYLPREDNISOLONE [Concomitant]

REACTIONS (5)
  - CHEST DISCOMFORT [None]
  - CHEST PAIN [None]
  - DYSPNOEA [None]
  - MILIA [None]
  - SKIN DISORDER [None]
